FAERS Safety Report 8466808 (Version 5)
Quarter: 2012Q4

REPORT INFORMATION
  Report Type: 
  Country: US (occurrence: US)
  Receive Date: 20120320
  Receipt Date: 20121217
  Transmission Date: 20130627
  Serious: Yes (Death, Hospitalization, Other)
  Sender: FDA-Public Use
  Company Number: US-BAYER-2012-025632

PATIENT
  Age: 53 Year
  Sex: Male
  Weight: 115 kg

DRUGS (23)
  1. TRASYLOL [Suspect]
     Indication: MULTIPLE VESSEL BYPASS
     Dosage: 1 ml test dose, 200 ml pump prime, followed by conitinuous infusion of 50 ml/hr
     Route: 042
     Dates: start: 20060712, end: 20060712
  2. COREG [Concomitant]
  3. LIPITOR [Concomitant]
  4. FLONASE [Concomitant]
  5. PREVACID [Concomitant]
  6. CAPTOPRIL [Concomitant]
  7. LASIX [Concomitant]
  8. ACETYLSALICYLIC ACID({=100 MG) [Concomitant]
  9. NPH INSULIN [Concomitant]
  10. HEPARIN [Concomitant]
     Dosage: UNK
     Dates: start: 20060712, end: 20060712
  11. CARDIOPLEGIA [Concomitant]
     Dosage: UNK
     Dates: start: 20060712, end: 20060712
  12. THROMBIN [Concomitant]
     Dosage: 10000 u, UNK
     Route: 042
     Dates: start: 20060712, end: 20060712
  13. VERSED [Concomitant]
     Dosage: UNK
     Dates: start: 20060712, end: 20060712
  14. ANCEF [Concomitant]
     Dosage: 2 g, UNK
     Dates: start: 20060712, end: 20060712
  15. PACKED RED BLOOD CELLS [Concomitant]
     Dosage: 3 u, UNK
     Route: 042
     Dates: start: 20060712, end: 20060712
  16. MANNITOL [Concomitant]
     Dosage: UNK
     Dates: start: 20060712, end: 20060712
  17. LIDOCAINE [Concomitant]
     Dosage: UNK
     Dates: start: 20060712, end: 20060712
  18. FORANE [Concomitant]
     Dosage: UNK
     Dates: start: 20060712, end: 20060712
  19. ETOMIDATE [Concomitant]
     Dosage: UNK
     Dates: start: 20060712, end: 20060712
  20. PAVULON [Concomitant]
     Dosage: UNK
     Dates: start: 20060712, end: 20060712
  21. NEOSYNEPHRINE [Concomitant]
     Dosage: UNK
     Dates: start: 20060712, end: 20060712
  22. NITROGLYCERINE [Concomitant]
     Dosage: UNK
     Dates: start: 20060712, end: 20060712
  23. DOBUTAMINE [Concomitant]
     Dosage: UNK
     Dates: start: 20060712, end: 20060712

REACTIONS (9)
  - Death [Fatal]
  - Renal failure [None]
  - Renal failure [None]
  - Cardiac failure congestive [None]
  - Encephalopathy [None]
  - Respiratory distress [None]
  - Cellulitis [None]
  - Dyspnoea [None]
  - Depression [None]
